FAERS Safety Report 7244453-2 (Version None)
Quarter: 2011Q1

REPORT INFORMATION
  Report Type: 
  Country: None (occurrence: None)
  Receive Date: 20110125
  Receipt Date: 20110119
  Transmission Date: 20110831
  Serious: Yes (Other)
  Sender: FDA-Public Use
  Company Number: US-PFIZER INC-2011013539

PATIENT
  Sex: Female
  Weight: 68.027 kg

DRUGS (5)
  1. RESTORIL [Concomitant]
     Indication: SLEEP DISORDER
     Dosage: UNK
  2. CADUET [Suspect]
     Indication: BLOOD CHOLESTEROL INCREASED
  3. LYRICA [Suspect]
     Indication: FIBROMYALGIA
     Dosage: 50 UNK, 2X/DAY
     Dates: start: 20050101
  4. CADUET [Suspect]
     Indication: HYPERTENSION
     Dosage: 10/10 MG, 1X/DAY
     Route: 048
     Dates: start: 20050101, end: 20101001
  5. XANAX [Concomitant]
     Indication: ANXIETY
     Dosage: UNK

REACTIONS (2)
  - FIBROMYALGIA [None]
  - MOVEMENT DISORDER [None]
